FAERS Safety Report 5899263-5 (Version None)
Quarter: 2008Q3

REPORT INFORMATION
  Report Type: 
  Country: None (occurrence: None)
  Receive Date: 20080828
  Receipt Date: 20071019
  Transmission Date: 20090109
  Serious: Yes (Disabling, Other)
  Sender: FDA-Public Use
  Company Number: CIP07002205

PATIENT

DRUGS (1)
  1. ASACOL [Suspect]
     Dosage: ORAL
     Route: 048
     Dates: start: 20010101, end: 20040101

REACTIONS (2)
  - NEPHRITIS INTERSTITIAL [None]
  - RENAL FAILURE CHRONIC [None]
